FAERS Safety Report 8019571-1 (Version None)
Quarter: 2012Q1

REPORT INFORMATION
  Report Type: 
  Country: None (occurrence: None)
  Receive Date: 20120103
  Receipt Date: 20111223
  Transmission Date: 20120608
  Serious: Yes (Hospitalization, Other)
  Sender: FDA-Public Use
  Company Number: PHHY2011FR103304

PATIENT
  Sex: Female

DRUGS (25)
  1. PROZAC [Suspect]
     Indication: DEPRESSION
     Dosage: 0.5 DF, QD
     Route: 048
     Dates: start: 20110903
  2. MOTILIUM [Concomitant]
     Dosage: 3 DF, DAILY
  3. TRANSIPEG [Concomitant]
     Dosage: 2 DF, IN MORNING
     Route: 048
     Dates: start: 20110903
  4. LAMALINE [Concomitant]
     Dosage: UNK UKN, PRN
  5. PREDNISOLONE [Concomitant]
     Dosage: 9 MG/DAY
  6. DILTIAZEM HCL [Concomitant]
     Dosage: 60 MG, (ONE TABLET IN THE MORNING, ONE TABLET IN THE EVENING),
     Route: 048
     Dates: start: 20110830
  7. PREDNISOLONE [Concomitant]
     Dosage: 15 MG, DAILY
  8. PREDNISOLONE [Concomitant]
     Dosage: 10 MG/DAY
  9. PREDNISOLONE [Concomitant]
     Dosage: 7 MG/DAY
  10. LEVOTHYROXINE SODIUM [Concomitant]
     Dosage: 100 UG, DAILY
     Route: 048
  11. PROPRANOLOL [Concomitant]
     Dosage: 1 DF, DAILY
  12. VALSARTAN [Suspect]
     Dosage: 1 DF, QD (40 MG)
     Route: 048
  13. STABLON [Suspect]
     Dosage: 2 DF, TID
     Route: 048
     Dates: start: 20110801
  14. IMOVANE [Concomitant]
     Dosage: 1 DF, QD
  15. ASPIRIN [Concomitant]
     Dosage: 1 DF, DAILY
     Route: 048
  16. PLAVIX [Concomitant]
     Dosage: 1 DF, DAILY
  17. ZOLEDRONOC ACID [Concomitant]
     Dosage: 1 DF, DAILY
     Route: 042
     Dates: start: 20090901
  18. CALCIUM CARBONATE [Concomitant]
     Dosage: 1 DF, QD (100 MG/880 IU)
     Route: 048
  19. LANSOPRAZOLE [Concomitant]
     Dosage: 1 DF, IN THE MORNING
  20. POLYETHYLENE GLYCOL [Concomitant]
  21. PREDNISONE TAB [Concomitant]
     Dosage: 0.5 DF, QD
     Route: 048
     Dates: start: 20110903
  22. SPASFON [Concomitant]
     Dosage: UNK UKN, UNK
     Route: 048
     Dates: start: 20110903
  23. ACETAMINOPHEN [Concomitant]
     Dosage: 3 DF, QD
     Route: 048
     Dates: start: 20110903
  24. GAVISCON [Concomitant]
     Dosage: UNK UKN, UNK
     Route: 048
     Dates: start: 20110903
  25. DOMPERIDONE [Concomitant]
     Dosage: 10 MG, TID, THRICE ADAY

REACTIONS (10)
  - HYPONATRAEMIA [None]
  - DEHYDRATION [None]
  - BACK PAIN [None]
  - BLOOD CHLORIDE DECREASED [None]
  - HAEMATOMA [None]
  - C-REACTIVE PROTEIN INCREASED [None]
  - CONSTIPATION [None]
  - ABDOMINAL DISCOMFORT [None]
  - ABDOMINAL PAIN [None]
  - GASTROINTESTINAL SOUNDS ABNORMAL [None]
